FAERS Safety Report 25006414 (Version 1)
Quarter: 2025Q1

REPORT INFORMATION
  Report Type: Spontaneous
  Country: ES (occurrence: ES)
  Receive Date: 20250224
  Receipt Date: 20250224
  Transmission Date: 20250409
  Serious: Yes (Other)
  Sender: NOVO NORDISK
  Company Number: ES-NOVOPROD-1371829

PATIENT
  Sex: Male

DRUGS (1)
  1. RYBELSUS [Suspect]
     Active Substance: SEMAGLUTIDE
     Indication: Diabetes mellitus
     Dates: start: 2023, end: 202412

REACTIONS (7)
  - Thyroid neoplasm [Unknown]
  - Laryngeal neoplasm [Unknown]
  - Dysplasia [Unknown]
  - Oesophageal achalasia [Unknown]
  - Condition aggravated [Unknown]
  - Vomiting [Unknown]
  - Weight decreased [Unknown]
